FAERS Safety Report 20866572 (Version 1)
Quarter: 2022Q2

REPORT INFORMATION
  Report Type: Spontaneous
  Country: CN (occurrence: CN)
  Receive Date: 20220524
  Receipt Date: 20220524
  Transmission Date: 20220721
  Serious: Yes (Other)
  Sender: FDA-Public Use
  Company Number: CN-009507513-2205CHN005859

PATIENT
  Age: 75 Year
  Sex: Male
  Weight: 59 kg

DRUGS (6)
  1. KEYTRUDA [Suspect]
     Active Substance: PEMBROLIZUMAB
     Indication: Oesophageal carcinoma
     Dosage: 100 MG, ONCE, D1, THE FOURTH CYCLE
     Route: 041
     Dates: start: 20220228, end: 20220228
  2. PACLITAXEL [Suspect]
     Active Substance: PACLITAXEL
     Indication: Oesophageal carcinoma
     Dosage: 0.2 G, ONCE, D1, THE FOURTH CYCLE
     Route: 041
     Dates: start: 20220228, end: 20220228
  3. CISPLATIN [Suspect]
     Active Substance: CISPLATIN
     Indication: Oesophageal carcinoma
     Dosage: 40 MG, ONCE A DAY, D1-2, THE FOURTH CYCLE
     Route: 041
     Dates: start: 20220228, end: 20220301
  4. SODIUM CHLORIDE [Concomitant]
     Active Substance: SODIUM CHLORIDE
     Indication: Oesophageal carcinoma
     Dosage: 40 ML, ONCE, D1, THE FOURTH CYCLE
     Route: 041
     Dates: start: 20220228, end: 20220228
  5. SODIUM CHLORIDE [Concomitant]
     Active Substance: SODIUM CHLORIDE
     Dosage: 90 ML, ONCE, D1, THE FOURTH CYCLE
     Route: 041
     Dates: start: 20220228, end: 20220228
  6. SODIUM CHLORIDE [Concomitant]
     Active Substance: SODIUM CHLORIDE
     Dosage: 500 ML, ONCE A DAY, D1-2, THE FOURTH CYCLE
     Route: 041
     Dates: start: 20220228, end: 20220301

REACTIONS (2)
  - Thrombocytopenia [Recovering/Resolving]
  - Underdose [Unknown]

NARRATIVE: CASE EVENT DATE: 20220228
